FAERS Safety Report 21198380 (Version 1)
Quarter: 2022Q3

REPORT INFORMATION
  Report Type: Report from Study
  Country: CA (occurrence: CA)
  Receive Date: 20220811
  Receipt Date: 20220811
  Transmission Date: 20221027
  Serious: Yes (Other)
  Sender: FDA-Public Use
  Company Number: CA-JNJFOC-20220612869

PATIENT
  Age: 0 Year

DRUGS (2)
  1. REMICADE [Suspect]
     Active Substance: INFLIXIMAB
     Indication: Crohn^s disease
     Route: 064
     Dates: start: 20170811
  2. REMICADE [Suspect]
     Active Substance: INFLIXIMAB
     Route: 063

REACTIONS (3)
  - Foetal exposure during pregnancy [Recovered/Resolved]
  - Premature baby [Unknown]
  - Exposure via breast milk [Not Recovered/Not Resolved]

NARRATIVE: CASE EVENT DATE: 20220513
